FAERS Safety Report 7396618-7 (Version None)
Quarter: 2011Q2

REPORT INFORMATION
  Report Type: 
  Country: None (occurrence: None)
  Receive Date: 20110406
  Receipt Date: 20110323
  Transmission Date: 20111010
  Serious: Yes (Other)
  Sender: FDA-Public Use
  Company Number: PHHY2011DE06890

PATIENT
  Age: 55 Year
  Sex: Female
  Weight: 88 kg

DRUGS (8)
  1. STILNOX [Concomitant]
     Indication: INSOMNIA
     Dosage: 1 DF, QD
  2. VALORON N [Concomitant]
     Indication: FIBROMYALGIA
     Dosage: 40 DRP, BID
     Route: 048
  3. TILIDIN [Concomitant]
     Dosage: 40 GTT, QD (IN EVENING)
  4. TORSEMIDE [Concomitant]
     Dosage: 10 MG, UNK
  5. FENISTIL [Suspect]
     Indication: PRURITUS
     Dosage: 40 DRP, PRN
     Route: 048
  6. EUTHYROX [Concomitant]
     Indication: HYPOTHYROIDISM
     Dosage: 125 UG, UNK
     Route: 048
  7. PANTOPRAZOLE SODIUM [Concomitant]
     Indication: GASTROOESOPHAGEAL REFLUX DISEASE
     Dosage: 40 MG, QD
     Route: 048
  8. RASILEZ [Suspect]
     Indication: HYPERTENSION
     Dosage: 1 DF (300 MG), QD
     Dates: start: 20101029

REACTIONS (13)
  - ERUCTATION [None]
  - PRURITUS [None]
  - DYSPEPSIA [None]
  - CHEST DISCOMFORT [None]
  - PHARYNGEAL OEDEMA [None]
  - ABDOMINAL DISTENSION [None]
  - MALAISE [None]
  - FATIGUE [None]
  - POLLAKIURIA [None]
  - DYSGEUSIA [None]
  - COUGH [None]
  - MICTURITION URGENCY [None]
  - CHEST PAIN [None]
